FAERS Safety Report 26150919 (Version 1)
Quarter: 2025Q4

REPORT INFORMATION
  Report Type: Spontaneous
  Country: US (occurrence: US)
  Receive Date: 20251212
  Receipt Date: 20251212
  Transmission Date: 20260118
  Serious: No
  Sender: MERCK SHARP & DOHME LLC
  Company Number: US-009507513-2359388

PATIENT
  Age: 40 Year
  Sex: Female

DRUGS (6)
  1. DAPTOMYCIN [Suspect]
     Active Substance: DAPTOMYCIN
     Indication: Staphylococcal bacteraemia
  2. CEFTAROLINE [Concomitant]
     Active Substance: CEFTAROLINE
     Indication: Staphylococcal bacteraemia
  3. VANCOMYCIN [Concomitant]
     Active Substance: VANCOMYCIN
  4. OSELTAMIVIR [Concomitant]
     Active Substance: OSELTAMIVIR
  5. LOVENOX [Concomitant]
     Active Substance: ENOXAPARIN SODIUM
  6. DEXAMETHASONE [Concomitant]
     Active Substance: DEXAMETHASONE
     Indication: Acute respiratory distress syndrome

REACTIONS (1)
  - Drug ineffective [Unknown]
